FAERS Safety Report 14675466 (Version 1)
Quarter: 2018Q1

REPORT INFORMATION
  Report Type: Report from Study
  Country: US (occurrence: US)
  Receive Date: 20180323
  Receipt Date: 20180323
  Transmission Date: 20180509
  Serious: No
  Sender: FDA-Public Use
  Company Number: US-AMGEN-USASL2018039055

PATIENT
  Sex: Female

DRUGS (1)
  1. ENBREL [Suspect]
     Active Substance: ETANERCEPT
     Indication: RHEUMATOID ARTHRITIS
     Dosage: 50 MG, QWK
     Route: 065

REACTIONS (10)
  - Photophobia [Unknown]
  - Vision blurred [Unknown]
  - Influenza like illness [Unknown]
  - Burning sensation [Unknown]
  - Eye pain [Unknown]
  - Urinary incontinence [Unknown]
  - Ear pain [Unknown]
  - Oropharyngeal pain [Unknown]
  - Headache [Unknown]
  - Urinary tract infection [Unknown]
